FAERS Safety Report 13145369 (Version 2)
Quarter: 2017Q1

REPORT INFORMATION
  Report Type: Spontaneous
  Country: US (occurrence: US)
  Receive Date: 20170124
  Receipt Date: 20170214
  Transmission Date: 20170428
  Serious: Yes (Other)
  Sender: FDA-Public Use
  Company Number: US-KVK-TECH, INC-1062340

PATIENT
  Age: 56 Year
  Sex: Female
  Weight: 70.46 kg

DRUGS (3)
  1. INDOMETHACIN. [Suspect]
     Active Substance: INDOMETHACIN
     Indication: PAIN IN EXTREMITY
     Route: 048
     Dates: start: 20161219, end: 20161227
  2. TRAMADOL. [Concomitant]
     Active Substance: TRAMADOL
     Route: 048
     Dates: start: 20161219, end: 20161220
  3. PAXIL [Concomitant]
     Active Substance: PAROXETINE HYDROCHLORIDE
     Route: 048

REACTIONS (17)
  - Chest pain [Recovered/Resolved]
  - Nausea [Recovered/Resolved]
  - Confusional state [Recovered/Resolved]
  - Limb discomfort [Recovered/Resolved]
  - Consciousness fluctuating [Recovered/Resolved]
  - Abdominal discomfort [Recovered/Resolved]
  - Dysarthria [Recovered/Resolved]
  - Unresponsive to stimuli [Recovered/Resolved]
  - Blood pressure increased [Recovered/Resolved]
  - Sedation [Recovered/Resolved]
  - Paralysis [Recovered/Resolved]
  - Tinnitus [Recovered/Resolved]
  - Anxiety [Not Recovered/Not Resolved]
  - Eye pain [Recovered/Resolved]
  - Change of bowel habit [Recovered/Resolved]
  - Blood phosphorus increased [Recovered/Resolved]
  - Muscular weakness [Recovered/Resolved]

NARRATIVE: CASE EVENT DATE: 20161226
